FAERS Safety Report 6252739-3 (Version None)
Quarter: 2009Q3

REPORT INFORMATION
  Report Type: 
  Country: None (occurrence: None)
  Receive Date: 20090701
  Receipt Date: 20090623
  Transmission Date: 20100115
  Serious: Yes (Life-Threatening)
  Sender: FDA-Public Use
  Company Number: SE-AVENTIS-200916329GDDC

PATIENT
  Age: 3 Week
  Sex: Male

DRUGS (4)
  1. CLAFORAN [Suspect]
     Indication: PYELONEPHRITIS
     Route: 042
     Dates: start: 20090309, end: 20090312
  2. CEDEX [Suspect]
     Indication: PYELONEPHRITIS
     Route: 048
     Dates: start: 20090312, end: 20090319
  3. TRIMETHOPRIM [Suspect]
     Indication: PROPHYLAXIS
     Route: 048
     Dates: start: 20090319
  4. ALVEDON [Concomitant]

REACTIONS (2)
  - CEREBRAL HAEMORRHAGE [None]
  - PROTHROMBIN LEVEL DECREASED [None]
